FAERS Safety Report 7692304-4 (Version None)
Quarter: 2011Q3

REPORT INFORMATION
  Report Type: 
  Country: None (occurrence: None)
  Receive Date: 20110818
  Receipt Date: 20110805
  Transmission Date: 20111222
  Serious: Yes (Hospitalization)
  Sender: FDA-Public Use
  Company Number: IT-MYLANLABS-2011S1016718

PATIENT
  Age: 10 Year
  Sex: Female

DRUGS (3)
  1. CARBAMAZEPINE [Concomitant]
     Indication: EPILEPSY
     Route: 065
  2. CLOBAZAM [Concomitant]
     Indication: EPILEPSY
     Route: 065
  3. BACLOFEN [Suspect]
     Indication: MUSCLE SPASTICITY
     Dosage: INTRATHECAL BACLOFEN PUMP (211 MICROG/DAY)
     Route: 037

REACTIONS (7)
  - HYPERTENSION [None]
  - DRUG WITHDRAWAL SYNDROME [None]
  - TACHYCARDIA [None]
  - DYSTONIA [None]
  - DYSKINESIA [None]
  - GRAND MAL CONVULSION [None]
  - PYREXIA [None]
